FAERS Safety Report 20685996 (Version 1)
Quarter: 2022Q2

REPORT INFORMATION
  Report Type: Spontaneous
  Country: US (occurrence: US)
  Receive Date: 20220407
  Receipt Date: 20220407
  Transmission Date: 20220721
  Serious: No
  Sender: FDA-Public Use
  Company Number: US-JAZZ-2022-US-006088

PATIENT
  Sex: Female

DRUGS (3)
  1. SUNOSI [Suspect]
     Active Substance: SOLRIAMFETOL
     Indication: Narcolepsy
     Dosage: UNKNOWN DOSE AND FREQUENCY
     Route: 048
  2. ESCITALOPRAM [Concomitant]
     Active Substance: ESCITALOPRAM OXALATE
     Dosage: 0000
     Dates: start: 20211119
  3. PROPRANOLOL [Concomitant]
     Active Substance: PROPRANOLOL HYDROCHLORIDE
     Dosage: 0000
     Dates: start: 20211115

REACTIONS (1)
  - Drug ineffective [Unknown]
